FAERS Safety Report 13020249 (Version 1)
Quarter: 2016Q4

REPORT INFORMATION
  Report Type: Spontaneous
  Country: US (occurrence: US)
  Receive Date: 20161212
  Receipt Date: 20161212
  Transmission Date: 20170207
  Serious: Yes (Other)
  Sender: FDA-Public Use
  Company Number: US-ELI_LILLY_AND_COMPANY-US201607010672

PATIENT
  Sex: Female
  Weight: 126.8 kg

DRUGS (11)
  1. LISINOPRIL. [Concomitant]
     Active Substance: LISINOPRIL
     Route: 065
  2. GLIMEPIRIDE. [Concomitant]
     Active Substance: GLIMEPIRIDE
     Route: 065
  3. FLEXERIL [Concomitant]
     Active Substance: CYCLOBENZAPRINE HYDROCHLORIDE
     Route: 065
  4. MELOXICAM. [Concomitant]
     Active Substance: MELOXICAM
     Dosage: 7.5 MG, BID
     Route: 065
  5. CAMA [Concomitant]
     Active Substance: MAGNESIUM HYDROXIDE
     Route: 065
  6. CYMBALTA [Suspect]
     Active Substance: DULOXETINE HYDROCHLORIDE
     Dosage: 60 MG, EACH EVENING
     Route: 065
     Dates: start: 200905
  7. PRAVASTATIN. [Concomitant]
     Active Substance: PRAVASTATIN
     Route: 065
  8. CYMBALTA [Suspect]
     Active Substance: DULOXETINE HYDROCHLORIDE
     Indication: FIBROMYALGIA
     Dosage: 30 MG, EACH EVENING
     Route: 065
     Dates: start: 20090505
  9. JANUMET [Concomitant]
     Active Substance: METFORMIN HYDROCHLORIDE\SITAGLIPTIN PHOSPHATE
     Route: 065
  10. TRAMADOL. [Concomitant]
     Active Substance: TRAMADOL
     Dosage: 50 MG, OTHER
     Route: 065
  11. XANAX [Concomitant]
     Active Substance: ALPRAZOLAM
     Route: 065

REACTIONS (21)
  - Vertigo [Unknown]
  - Confusional state [Unknown]
  - Insomnia [Unknown]
  - Anxiety [Unknown]
  - Dysphoria [Unknown]
  - Diarrhoea [Unknown]
  - Suicidal ideation [Unknown]
  - Paraesthesia [Unknown]
  - Dizziness [Unknown]
  - Hyperhidrosis [Unknown]
  - Agitation [Unknown]
  - Headache [Unknown]
  - Affect lability [Unknown]
  - Tremor [Unknown]
  - Nausea [Unknown]
  - Drug withdrawal syndrome [Unknown]
  - Sensory disturbance [Unknown]
  - Fatigue [Unknown]
  - Irritability [Unknown]
  - Lethargy [Unknown]
  - Tinnitus [Unknown]
